FAERS Safety Report 5643063-8 (Version None)
Quarter: 2008Q1

REPORT INFORMATION
  Report Type: 
  Country: None (occurrence: None)
  Receive Date: 20080228
  Receipt Date: 20080226
  Transmission Date: 20080703
  Serious: Yes (Hospitalization)
  Sender: FDA-Public Use
  Company Number: FR-MERCK-0712FRA00025

PATIENT
  Age: 62 Year
  Sex: Female

DRUGS (4)
  1. COZAAR [Suspect]
     Indication: HYPERTENSION
     Route: 048
     Dates: start: 19970101, end: 20060201
  2. COZAAR [Suspect]
     Route: 048
     Dates: start: 20060201
  3. LEVOTHYROXINE SODIUM [Concomitant]
     Indication: HYPOTHYROIDISM
     Route: 048
  4. CALCIUM CARBONATE AND CHOLECALCIFEROL [Concomitant]
     Indication: OSTEOPOROSIS
     Route: 048

REACTIONS (1)
  - LEUKAEMIA [None]
